FAERS Safety Report 19063907 (Version 1)
Quarter: 2021Q1

REPORT INFORMATION
  Report Type: Spontaneous
  Country: TW (occurrence: TW)
  Receive Date: 20210326
  Receipt Date: 20210326
  Transmission Date: 20210420
  Serious: Yes (Other)
  Sender: FDA-Public Use
  Company Number: TW-FRESENIUS KABI-FK202103060

PATIENT
  Age: 64 Year
  Sex: Male

DRUGS (1)
  1. CARBOPLATIN (MANUFACTURER UNKNOWN) [Suspect]
     Active Substance: CARBOPLATIN
     Indication: PARAGANGLION NEOPLASM
     Dosage: 2 WEEKLY, SIX CYCLE
     Route: 065

REACTIONS (5)
  - Stomatitis [Unknown]
  - Off label use [Unknown]
  - Oesophagitis [Unknown]
  - Pneumonia [Recovered/Resolved]
  - Skin reaction [Unknown]
